FAERS Safety Report 13567818 (Version 1)
Quarter: 2017Q2

REPORT INFORMATION
  Report Type: Spontaneous
  Country: US (occurrence: US)
  Receive Date: 20170522
  Receipt Date: 20170522
  Transmission Date: 20170830
  Serious: No
  Sender: FDA-Public Use
  Company Number: US-ASTRAZENECA-2017SE53764

PATIENT
  Age: 27947 Day
  Sex: Male
  Weight: 63.5 kg

DRUGS (3)
  1. MUTAMUCIL [Concomitant]
     Indication: CONSTIPATION
     Route: 048
     Dates: start: 2007
  2. AMITIZA [Concomitant]
     Active Substance: LUBIPROSTONE
     Route: 048
     Dates: start: 20170501
  3. MOVANTIK [Suspect]
     Active Substance: NALOXEGOL OXALATE
     Indication: CONSTIPATION
     Route: 048
     Dates: start: 201702, end: 201704

REACTIONS (2)
  - Abdominal pain [Not Recovered/Not Resolved]
  - Constipation [Not Recovered/Not Resolved]

NARRATIVE: CASE EVENT DATE: 20170505
